FAERS Safety Report 9298517 (Version 1)
Quarter: 2013Q2

REPORT INFORMATION
  Report Type: Spontaneous
  Country: AU (occurrence: AU)
  Receive Date: 20130520
  Receipt Date: 20130520
  Transmission Date: 20140414
  Serious: Yes (Hospitalization, Other)
  Sender: FDA-Public Use
  Company Number: AU-ROCHE-1224154

PATIENT
  Age: 49 Year
  Sex: Male

DRUGS (6)
  1. PEG-INTERFERON ALFA 2A [Suspect]
     Indication: CHRONIC HEPATITIS C
     Route: 065
     Dates: start: 201202, end: 201207
  2. RIBAVIRIN [Suspect]
     Indication: CHRONIC HEPATITIS C
     Route: 065
     Dates: start: 201202, end: 201207
  3. RIBAVIRIN [Suspect]
     Route: 065
  4. BOCEPREVIR [Suspect]
     Indication: CHRONIC HEPATITIS C
     Route: 065
     Dates: end: 201207
  5. ALDACTONE [Concomitant]
     Indication: FLUID OVERLOAD
     Route: 065
  6. BACTRIM [Concomitant]
     Indication: PERITONITIS BACTERIAL
     Route: 065

REACTIONS (13)
  - Oedema peripheral [Unknown]
  - Nausea [Unknown]
  - Diarrhoea [Unknown]
  - Ascites [Unknown]
  - Oedema [Unknown]
  - Peritonitis bacterial [Unknown]
  - Asthenia [Unknown]
  - Fluid overload [Unknown]
  - Hepatic encephalopathy [Unknown]
  - Hepatocellular carcinoma [Unknown]
  - Vomiting [Unknown]
  - Irritability [Unknown]
  - Lethargy [Unknown]
